FAERS Safety Report 17663806 (Version 1)
Quarter: 2020Q2

REPORT INFORMATION
  Report Type: Spontaneous
  Country: US (occurrence: US)
  Receive Date: 20200414
  Receipt Date: 20200414
  Transmission Date: 20200713
  Serious: Yes (Hospitalization)
  Sender: FDA-Public Use
  Company Number: US-ROCHE-2581313

PATIENT
  Age: 71 Year
  Sex: Male

DRUGS (2)
  1. ESBRIET [Suspect]
     Active Substance: PIRFENIDONE
     Indication: IDIOPATHIC PULMONARY FIBROSIS
     Dosage: STARTED ABOUT LAST WEEK OF FEB 2020 ;ONGOING: NO
     Route: 048
     Dates: start: 202002, end: 202003
  2. ESBRIET [Suspect]
     Active Substance: PIRFENIDONE
     Dosage: STARTED ABOUT 1 WEEK AGO  EVERY OTHER DAY ;ONGOING: YES
     Route: 048
     Dates: start: 202003

REACTIONS (3)
  - Constipation [Recovered/Resolved]
  - Infection [Not Recovered/Not Resolved]
  - Diarrhoea [Recovered/Resolved]

NARRATIVE: CASE EVENT DATE: 202003
